FAERS Safety Report 8209747-2 (Version None)
Quarter: 2012Q1

REPORT INFORMATION
  Report Type: 
  Country: None (occurrence: None)
  Receive Date: 20120314
  Receipt Date: 20120301
  Transmission Date: 20120608
  Serious: Yes (Other)
  Sender: FDA-Public Use
  Company Number: US-ELI_LILLY_AND_COMPANY-US201203001011

PATIENT
  Age: 53 Year
  Sex: Female

DRUGS (2)
  1. CYMBALTA [Suspect]
     Indication: BACK PAIN
     Dosage: 30 MG, QD
     Dates: start: 20120201
  2. CYMBALTA [Suspect]
     Dosage: 60 MG, QD
     Dates: end: 20120227

REACTIONS (6)
  - ENDOTRACHEAL INTUBATION COMPLICATION [None]
  - DRUG INEFFECTIVE [None]
  - DYSPHAGIA [None]
  - OESOPHAGEAL OEDEMA [None]
  - SPINAL FUSION SURGERY [None]
  - OESOPHAGEAL INJURY [None]
